FAERS Safety Report 6674619-1 (Version None)
Quarter: 2010Q2

REPORT INFORMATION
  Report Type: 
  Country: None (occurrence: None)
  Receive Date: 20100409
  Receipt Date: 20100405
  Transmission Date: 20101027
  Serious: Yes (Other)
  Sender: FDA-Public Use
  Company Number: GR-ROCHE-695269

PATIENT

DRUGS (1)
  1. AVASTIN [Suspect]
     Route: 031

REACTIONS (3)
  - ATROPHY OF GLOBE [None]
  - CHOROIDAL HAEMORRHAGE [None]
  - SYMPATHETIC OPHTHALMIA [None]
